FAERS Safety Report 6582604-3 (Version None)
Quarter: 2010Q1

REPORT INFORMATION
  Report Type: 
  Country: None (occurrence: None)
  Receive Date: 20100216
  Receipt Date: 20100208
  Transmission Date: 20100710
  Serious: Yes (Other)
  Sender: FDA-Public Use
  Company Number: US-ASTRAZENECA-2010SE05870

PATIENT
  Age: 74 Year
  Sex: Female
  Weight: 94.8 kg

DRUGS (9)
  1. TOPROL-XL [Suspect]
     Indication: ATRIAL FIBRILLATION
     Route: 048
  2. TOPROL-XL [Suspect]
     Route: 048
  3. DRONEDARONE [Suspect]
     Indication: ATRIAL FIBRILLATION
     Route: 048
     Dates: start: 20090801
  4. HYDRALAZINE [Concomitant]
  5. SYNTHROID [Concomitant]
  6. COUMADIN [Concomitant]
  7. DARVOCET-N 100 [Concomitant]
  8. RESTORIL [Concomitant]
  9. LISINOPRIL [Concomitant]

REACTIONS (13)
  - ATRIAL FIBRILLATION [None]
  - CHEST DISCOMFORT [None]
  - CONSTIPATION [None]
  - FATIGUE [None]
  - FLUID RETENTION [None]
  - HEART RATE INCREASED [None]
  - INCREASED APPETITE [None]
  - LETHARGY [None]
  - NAUSEA [None]
  - NOCTURIA [None]
  - OEDEMA PERIPHERAL [None]
  - WEIGHT DECREASED [None]
  - WEIGHT INCREASED [None]
